FAERS Safety Report 15044750 (Version 2)
Quarter: 2018Q3

REPORT INFORMATION
  Report Type: Report from Study
  Country: CA (occurrence: CA)
  Receive Date: 20180621
  Receipt Date: 20180830
  Transmission Date: 20181010
  Serious: Yes (Other)
  Sender: FDA-Public Use
  Company Number: CA-JNJFOC-20180620948

PATIENT
  Age: 59 Year
  Sex: Female

DRUGS (1)
  1. STELARA [Suspect]
     Active Substance: USTEKINUMAB
     Indication: CROHN^S DISEASE
     Dosage: STRENGTH = 90 MG
     Route: 058
     Dates: start: 20170104

REACTIONS (4)
  - Nasal septum deviation [Unknown]
  - Furuncle [Not Recovered/Not Resolved]
  - Pain in extremity [Not Recovered/Not Resolved]
  - Moraxella infection [Not Recovered/Not Resolved]

NARRATIVE: CASE EVENT DATE: 201805
